FAERS Safety Report 11457908 (Version 1)
Quarter: 2015Q3

REPORT INFORMATION
  Report Type: Report from Study
  Country: US (occurrence: US)
  Receive Date: 20150904
  Receipt Date: 20150904
  Transmission Date: 20151125
  Serious: Yes (Hospitalization, Other)
  Sender: FDA-Public Use
  Company Number: PHHO2010US07416

PATIENT
  Age: 59 Year
  Sex: Male
  Weight: 50 kg

DRUGS (6)
  1. DAUNORUBICIN [Suspect]
     Active Substance: DAUNORUBICIN
     Indication: ACUTE MYELOID LEUKAEMIA
     Dosage: 276 MG, UNK
     Route: 042
     Dates: start: 20081220, end: 20081220
  2. BLINDED CGP 41251 [Suspect]
     Active Substance: MIDOSTAURIN
     Indication: ACUTE MYELOID LEUKAEMIA
     Dosage: DOUBLE BLINDED
     Route: 048
     Dates: start: 20081216, end: 20090107
  3. BLINDED NO TREATMENT RECEIVED [Suspect]
     Active Substance: UNSPECIFIED INGREDIENT
     Indication: ACUTE MYELOID LEUKAEMIA
     Dosage: DOUBLE BLINDED
     Route: 048
     Dates: start: 20081216, end: 20090107
  4. VANCOMYCIN [Suspect]
     Active Substance: VANCOMYCIN
     Indication: PRODUCT USED FOR UNKNOWN INDICATION
     Route: 042
  5. CYTARABINE. [Suspect]
     Active Substance: CYTARABINE
     Indication: ACUTE MYELOID LEUKAEMIA
     Dosage: 2100 MG, UNK
     Route: 042
     Dates: end: 20081224
  6. PLACEBO [Suspect]
     Active Substance: UNSPECIFIED INGREDIENT
     Indication: ACUTE MYELOID LEUKAEMIA
     Dosage: DOUBLE BLINDED
     Route: 048
     Dates: start: 20081216, end: 20090107

REACTIONS (8)
  - Acute kidney injury [Recovered/Resolved]
  - Metabolic disorder [Recovered/Resolved]
  - Renal tubular necrosis [Recovered/Resolved]
  - Periorbital cellulitis [Unknown]
  - Blood creatinine increased [Recovered/Resolved]
  - Urine output decreased [Recovered/Resolved]
  - Pneumonia [Unknown]
  - Toxicity to various agents [Recovered/Resolved]

NARRATIVE: CASE EVENT DATE: 20081215
